FAERS Safety Report 8593349-2 (Version None)
Quarter: 2012Q3

REPORT INFORMATION
  Report Type: 
  Country: None (occurrence: None)
  Receive Date: 20120814
  Receipt Date: 20120807
  Transmission Date: 20120928
  Serious: Yes (Hospitalization)
  Sender: FDA-Public Use
  Company Number: DE-JNJFOC-20120803669

PATIENT
  Age: 7 Decade
  Sex: Female

DRUGS (4)
  1. METHOTREXATE [Concomitant]
  2. GOLIMUMAB [Suspect]
     Indication: RHEUMATOID ARTHRITIS
     Route: 058
     Dates: start: 20100901
  3. GOLIMUMAB [Suspect]
     Route: 058
     Dates: start: 20100201
  4. GOLIMUMAB [Suspect]
     Route: 058

REACTIONS (1)
  - FOOT OPERATION [None]
